FAERS Safety Report 20043784 (Version 2)
Quarter: 2021Q4

REPORT INFORMATION
  Report Type: Report from Study
  Country: US (occurrence: US)
  Receive Date: 20211108
  Receipt Date: 20211228
  Transmission Date: 20220303
  Serious: Yes (Death, Hospitalization)
  Sender: FDA-Public Use
  Company Number: US-EXELIXIS-CABO-21044690

PATIENT
  Age: 25 Year
  Sex: Male

DRUGS (1)
  1. CABOMETYX [Suspect]
     Active Substance: CABOZANTINIB S-MALATE
     Indication: Testis cancer
     Dosage: 60 MG, QD
     Dates: start: 20210908

REACTIONS (8)
  - Urinary tract infection [Unknown]
  - Malaise [Unknown]
  - Back pain [Unknown]
  - Blood pressure increased [Unknown]
  - Death [Fatal]
  - Somnolence [Unknown]
  - Fatigue [Unknown]
  - Off label use [Unknown]

NARRATIVE: CASE EVENT DATE: 20210901
